FAERS Safety Report 6628912-9 (Version None)
Quarter: 2010Q1

REPORT INFORMATION
  Report Type: 
  Country: None (occurrence: None)
  Receive Date: 20100311
  Receipt Date: 20100301
  Transmission Date: 20100710
  Serious: Yes (Other)
  Sender: FDA-Public Use
  Company Number: US-PFIZER INC-2009302050

PATIENT
  Sex: Female

DRUGS (2)
  1. SUTENT [Suspect]
     Indication: METASTATIC RENAL CELL CARCINOMA
     Dosage: 50 MG, DAILY X 28 DAYS EVERY 42 DAYS
     Dates: start: 20091104, end: 20091201
  2. SUTENT [Suspect]
     Dosage: 37.5 MG, 1X/DAY,  X 28 DAYS EVERY 42 DAYS
     Dates: start: 20091216

REACTIONS (16)
  - ASTHENIA [None]
  - DECREASED APPETITE [None]
  - DYSGEUSIA [None]
  - DYSPNOEA [None]
  - EPISTAXIS [None]
  - GLOSSODYNIA [None]
  - HEADACHE [None]
  - MALAISE [None]
  - PRURITUS [None]
  - PULMONARY OEDEMA [None]
  - SKIN EXFOLIATION [None]
  - SPEECH DISORDER [None]
  - STOMATITIS [None]
  - SWELLING FACE [None]
  - SYNCOPE [None]
  - WEIGHT DECREASED [None]
